FAERS Safety Report 19982961 (Version 2)
Quarter: 2022Q4

REPORT INFORMATION
  Report Type: Spontaneous
  Country: KR (occurrence: KR)
  Receive Date: 20211022
  Receipt Date: 20221018
  Transmission Date: 20230113
  Serious: Yes (Death, Life-Threatening, Hospitalization, Other)
  Sender: FDA-Public Use
  Company Number: KR-MACLEODS PHARMACEUTICALS US LTD-MAC2016002945

PATIENT

DRUGS (23)
  1. MOXIFLOXACIN [Suspect]
     Active Substance: MOXIFLOXACIN
     Indication: Pulmonary tuberculosis
     Dosage: 400 MILLIGRAM
     Route: 065
     Dates: start: 20130624, end: 20130811
  2. MOXIFLOXACIN [Suspect]
     Active Substance: MOXIFLOXACIN
     Indication: Lymph node tuberculosis
     Dosage: UNK
     Route: 065
     Dates: start: 20130903, end: 20130903
  3. MOXIFLOXACIN [Suspect]
     Active Substance: MOXIFLOXACIN
     Dosage: UNK
     Route: 065
     Dates: start: 20130925, end: 20130928
  4. ISONIAZID [Suspect]
     Active Substance: ISONIAZID
     Indication: Pulmonary tuberculosis
     Dosage: 300 MILLIGRAM
     Route: 065
     Dates: start: 20130513, end: 20130811
  5. ISONIAZID [Suspect]
     Active Substance: ISONIAZID
     Indication: Lymph node tuberculosis
     Dosage: 300 MILLIGRAM
     Route: 065
     Dates: start: 20130831, end: 20130901
  6. ETHAMBUTOL [Suspect]
     Active Substance: ETHAMBUTOL HYDROCHLORIDE
     Indication: Pulmonary tuberculosis
     Dosage: 800 MILLIGRAM
     Route: 065
     Dates: start: 20130513, end: 20130526
  7. ETHAMBUTOL [Suspect]
     Active Substance: ETHAMBUTOL HYDROCHLORIDE
     Indication: Lymph node tuberculosis
     Dosage: UNK
     Route: 065
     Dates: start: 20130610
  8. ETHAMBUTOL [Suspect]
     Active Substance: ETHAMBUTOL HYDROCHLORIDE
     Dosage: 400 MILLIGRAM
     Route: 065
     Dates: start: 20130624, end: 20130902
  9. PYRAZINAMIDE [Suspect]
     Active Substance: PYRAZINAMIDE
     Indication: Pulmonary tuberculosis
     Dosage: 1500 MILLIGRAM
     Route: 065
     Dates: start: 20130513, end: 20130526
  10. PYRAZINAMIDE [Suspect]
     Active Substance: PYRAZINAMIDE
     Indication: Lymph node tuberculosis
     Dosage: UNK
     Route: 065
     Dates: start: 20130605
  11. PYRAZINAMIDE [Suspect]
     Active Substance: PYRAZINAMIDE
     Dosage: 1000 MILLIGRAM
     Route: 065
     Dates: start: 20130624, end: 20130901
  12. RIFAMPIN [Suspect]
     Active Substance: RIFAMPIN
     Indication: Pulmonary tuberculosis
     Dosage: 600 MILLIGRAM
     Route: 065
     Dates: start: 20130513, end: 20130526
  13. RIFAMPIN [Suspect]
     Active Substance: RIFAMPIN
     Indication: Lymph node tuberculosis
     Dosage: UNK
     Route: 065
     Dates: start: 20130603, end: 20130604
  14. RIFAMPIN [Suspect]
     Active Substance: RIFAMPIN
     Dosage: 75 MILLIGRAM
     Route: 065
     Dates: start: 20130613, end: 20130623
  15. ETHIONAMIDE [Suspect]
     Active Substance: ETHIONAMIDE
     Indication: Pulmonary tuberculosis
     Dosage: UNK
     Route: 065
     Dates: start: 20130902
  16. ETHIONAMIDE [Suspect]
     Active Substance: ETHIONAMIDE
     Indication: Lymph node tuberculosis
     Dosage: UNK
     Route: 065
     Dates: start: 20130905
  17. CYCLOSERINE [Suspect]
     Active Substance: CYCLOSERINE
     Indication: Pulmonary tuberculosis
     Dosage: 250 MILLIGRAM
     Route: 065
     Dates: start: 20130831, end: 20130901
  18. CYCLOSERINE [Suspect]
     Active Substance: CYCLOSERINE
     Dosage: UNK
     Route: 065
     Dates: start: 20130902, end: 20130904
  19. STREPTOMYCIN [Suspect]
     Active Substance: STREPTOMYCIN SULFATE
     Indication: Pulmonary tuberculosis
     Dosage: 2 GRAM
     Route: 042
     Dates: start: 20130831, end: 20130901
  20. STREPTOMYCIN [Suspect]
     Active Substance: STREPTOMYCIN SULFATE
     Dosage: UNK
     Route: 065
     Dates: start: 20130902, end: 20130905
  21. STREPTOMYCIN [Suspect]
     Active Substance: STREPTOMYCIN SULFATE
     Dosage: UNK
     Route: 065
     Dates: start: 20130913, end: 20130922
  22. PARA-AMINOSALICYLIC ACID [Suspect]
     Active Substance: AMINOSALICYLIC ACID
     Indication: Pulmonary tuberculosis
     Dosage: UNK
     Route: 065
     Dates: start: 20130902
  23. PARA-AMINOSALICYLIC ACID [Suspect]
     Active Substance: AMINOSALICYLIC ACID
     Dosage: UNK
     Route: 065
     Dates: start: 20130905

REACTIONS (21)
  - Septic shock [Fatal]
  - Drug reaction with eosinophilia and systemic symptoms [Unknown]
  - Tremor [Unknown]
  - Anxiety [Unknown]
  - Renal infarct [Unknown]
  - Sepsis [Unknown]
  - Pneumonia [Unknown]
  - Bacteraemia [Unknown]
  - Brachiocephalic vein thrombosis [Unknown]
  - Hypoxia [Unknown]
  - Endocarditis [Unknown]
  - Acute generalised exanthematous pustulosis [Unknown]
  - Hypotension [Unknown]
  - Tachycardia [Unknown]
  - Metabolic acidosis [Unknown]
  - Febrile convulsion [Unknown]
  - Injection site pain [Unknown]
  - Dizziness [Unknown]
  - Nausea [Unknown]
  - Vomiting [Unknown]
  - Diarrhoea [Unknown]

NARRATIVE: CASE EVENT DATE: 20131024
